FAERS Safety Report 8501292-X (Version None)
Quarter: 2012Q3

REPORT INFORMATION
  Report Type: 
  Country: None (occurrence: None)
  Receive Date: 20120710
  Receipt Date: 20120706
  Transmission Date: 20120928
  Serious: No
  Sender: FDA-Public Use
  Company Number: US-PFIZER INC-2012162490

PATIENT
  Sex: Female

DRUGS (2)
  1. LYRICA [Suspect]
     Dosage: 75 MG, 2X/DAY
  2. LYRICA [Suspect]
     Indication: FIBROMYALGIA
     Dosage: 25 MG, 1X/DAY

REACTIONS (6)
  - MIGRAINE [None]
  - SLEEP DISORDER [None]
  - FEELING ABNORMAL [None]
  - DRUG INEFFECTIVE [None]
  - ARTHRALGIA [None]
  - BACK PAIN [None]
